FAERS Safety Report 24592724 (Version 1)
Quarter: 2024Q4

REPORT INFORMATION
  Report Type: Spontaneous
  Country: US (occurrence: US)
  Receive Date: 20241108
  Receipt Date: 20241108
  Transmission Date: 20250115
  Serious: Yes (Other)
  Sender: EPIC PHARM
  Company Number: US-EPICPHARMA-US-2024EPCSPO01362

PATIENT
  Age: 29 Year
  Weight: 160 kg

DRUGS (1)
  1. BUPROPION HYDROCHLORIDE [Suspect]
     Active Substance: BUPROPION HYDROCHLORIDE
     Indication: Product used for unknown indication
     Route: 048
     Dates: start: 20240725, end: 20241014

REACTIONS (6)
  - Suicidal ideation [Unknown]
  - Drug ineffective [Unknown]
  - Anxiety [Unknown]
  - Night sweats [Unknown]
  - Sleep disorder [Unknown]
  - Thinking abnormal [Unknown]
